FAERS Safety Report 12284915 (Version 2)
Quarter: 2016Q4

REPORT INFORMATION
  Report Type: Spontaneous
  Country: GB (occurrence: GB)
  Receive Date: 20160420
  Receipt Date: 20161012
  Transmission Date: 20170207
  Serious: Yes (Other)
  Sender: FDA-Public Use
  Company Number: GB-ACCORD-039739

PATIENT
  Age: 58 Year
  Sex: Female
  Weight: 82 kg

DRUGS (4)
  1. FEXOFENADINE/FEXOFENADINE HYDROCHLORIDE [Concomitant]
     Dosage: 1-2 TIMES DAILY
     Dates: start: 20140925
  2. AMLODIPINE [Suspect]
     Active Substance: AMLODIPINE BESYLATE
     Indication: HYPERTENSION
     Dates: start: 20151112
  3. LANSOPRAZOLE. [Concomitant]
     Active Substance: LANSOPRAZOLE
     Dates: start: 20151112
  4. PERINDOPRIL [Concomitant]
     Active Substance: PERINDOPRIL
     Dates: start: 20160323

REACTIONS (1)
  - Crohn^s disease [Recovered/Resolved]

NARRATIVE: CASE EVENT DATE: 20160124
